FAERS Safety Report 26025845 (Version 1)
Quarter: 2025Q4

REPORT INFORMATION
  Report Type: Spontaneous
  Country: US (occurrence: None)
  Receive Date: 20251110
  Receipt Date: 20251110
  Transmission Date: 20260118
  Serious: Yes (Life-Threatening, Hospitalization, Disabling, Other)
  Sender: FDA-CTU
  Company Number: None

PATIENT
  Sex: Female

DRUGS (2)
  1. HYDROCORTISONE [Suspect]
     Active Substance: HYDROCORTISONE
  2. CLOBETASOL [Suspect]
     Active Substance: CLOBETASOL

REACTIONS (4)
  - Topical steroid withdrawal reaction [None]
  - Therapy cessation [None]
  - Bedridden [None]
  - Quality of life decreased [None]

NARRATIVE: CASE EVENT DATE: 20191119
